FAERS Safety Report 9720441 (Version 1)
Quarter: 2013Q4

REPORT INFORMATION
  Report Type: Report from Study
  Country: CA (occurrence: CA)
  Receive Date: 20131129
  Receipt Date: 20131129
  Transmission Date: 20140711
  Serious: Yes (Other)
  Sender: FDA-Public Use
  Company Number: CA-JNJFOC-20131114386

PATIENT
  Age: 58 Year
  Sex: Female
  Weight: 54 kg

DRUGS (13)
  1. REMICADE [Suspect]
     Indication: CROHN^S DISEASE
     Route: 042
     Dates: start: 20130925
  2. REMICADE [Suspect]
     Indication: CROHN^S DISEASE
     Route: 042
     Dates: start: 20110921
  3. IMURAN [Concomitant]
     Route: 048
  4. PREDNISONE [Concomitant]
     Route: 048
  5. EFFEXOR [Concomitant]
     Route: 065
  6. VITAMIN C [Concomitant]
     Route: 065
  7. VITAMIN D [Concomitant]
     Route: 065
  8. LIPITOR [Concomitant]
     Route: 065
  9. ASA [Concomitant]
     Route: 065
  10. RAMIPRIL [Concomitant]
     Route: 065
  11. ZANTAC [Concomitant]
     Route: 065
  12. ATENOLOL [Concomitant]
     Route: 065
  13. HYDROCHLOROTHIAZIDE [Concomitant]
     Route: 065

REACTIONS (3)
  - Breast cancer [Unknown]
  - Pruritus [Recovering/Resolving]
  - Rash [Not Recovered/Not Resolved]
